FAERS Safety Report 18343765 (Version 1)
Quarter: 2020Q4

REPORT INFORMATION
  Report Type: Spontaneous
  Country: US (occurrence: US)
  Receive Date: 20201001
  Receipt Date: 20201001
  Transmission Date: 20210114
  Serious: Yes (Death, Hospitalization)
  Sender: FDA-Public Use
  Company Number: None

PATIENT
  Age: 12 Year
  Sex: Male
  Weight: 767 kg

DRUGS (6)
  1. METHOTREXATE. [Suspect]
     Active Substance: METHOTREXATE
     Dates: end: 20200921
  2. PREDNISONE. [Suspect]
     Active Substance: PREDNISONE
     Dates: end: 20200924
  3. DAUNORUBICIN [Suspect]
     Active Substance: DAUNORUBICIN
     Dates: end: 20200918
  4. ONCASPAR [Suspect]
     Active Substance: PEGASPARGASE
     Dates: end: 20200916
  5. CYTARABINE. [Suspect]
     Active Substance: CYTARABINE
     Dates: end: 20200908
  6. VINCRISTINE SULFATE. [Suspect]
     Active Substance: VINCRISTINE SULFATE
     Dates: end: 20200918

REACTIONS (11)
  - Tachycardia [None]
  - Cardiac arrest [None]
  - Pupil fixed [None]
  - Seizure [None]
  - Mental status changes [None]
  - Blood lactic acid increased [None]
  - Eye movement disorder [None]
  - Oxygen saturation decreased [None]
  - Hypotension [None]
  - Unresponsive to stimuli [None]
  - Tachypnoea [None]

NARRATIVE: CASE EVENT DATE: 20200925
